FAERS Safety Report 6157648-6 (Version None)
Quarter: 2009Q2

REPORT INFORMATION
  Report Type: 
  Country: None (occurrence: None)
  Receive Date: 20090414
  Receipt Date: 20090414
  Transmission Date: 20091009
  Serious: Yes (Other)
  Sender: FDA-Public Use
  Company Number: None

PATIENT
  Age: 71 Year
  Sex: Female
  Weight: 79.3795 kg

DRUGS (1)
  1. ZOLPIDEM [Suspect]
     Indication: INSOMNIA
     Dosage: 10MG ONCE AT BEDTIME PO
     Route: 048
     Dates: start: 20090408, end: 20090413

REACTIONS (3)
  - AMNESIA [None]
  - NAUSEA [None]
  - VOMITING [None]
